FAERS Safety Report 24309454 (Version 3)
Quarter: 2025Q3

REPORT INFORMATION
  Report Type: Spontaneous
  Country: EU (occurrence: EU)
  Receive Date: 20240911
  Receipt Date: 20250803
  Transmission Date: 20251021
  Serious: Yes (Other)
  Sender: ALEXION PHARMACEUTICALS
  Company Number: EU-AstraZeneca-CH-00701050A

PATIENT
  Age: 11 Year
  Sex: Male
  Weight: 52 kg

DRUGS (1)
  1. SOLIRIS [Suspect]
     Active Substance: ECULIZUMAB
     Indication: Product used for unknown indication
     Route: 065

REACTIONS (5)
  - Hepatic failure [Unknown]
  - Renal failure [Unknown]
  - Cardiac failure [Unknown]
  - Dysphagia [Unknown]
  - Bacterial infection [Unknown]
